FAERS Safety Report 17134113 (Version 1)
Quarter: 2019Q4

REPORT INFORMATION
  Report Type: Report from Study
  Country: CA (occurrence: CA)
  Receive Date: 20191210
  Receipt Date: 20191210
  Transmission Date: 20200122
  Serious: Yes (Other)
  Sender: FDA-Public Use
  Company Number: CA-ROCHE-2493167

PATIENT

DRUGS (8)
  1. PHENYLEPHRINE [Concomitant]
     Active Substance: PHENYLEPHRINE HYDROCHLORIDE
  2. PREDNISONE. [Concomitant]
     Active Substance: PREDNISONE
  3. GUAIFENESIN. [Concomitant]
     Active Substance: GUAIFENESIN
  4. CYCLOPHOSPHAMIDE. [Concomitant]
     Active Substance: CYCLOPHOSPHAMIDE
  5. HYDROXYDAUNORUBICIN [Concomitant]
     Active Substance: DOXORUBICIN
  6. DEXTROMETHORPHAN [Concomitant]
     Active Substance: DEXTROMETHORPHAN
  7. RITUXIMAB. [Suspect]
     Active Substance: RITUXIMAB
     Indication: DIFFUSE LARGE B-CELL LYMPHOMA
     Route: 041
  8. ONCOVIN [Concomitant]
     Active Substance: VINCRISTINE SULFATE

REACTIONS (1)
  - Diffuse large B-cell lymphoma recurrent [Unknown]
